FAERS Safety Report 19657497 (Version 2)
Quarter: 2021Q4

REPORT INFORMATION
  Report Type: Spontaneous
  Country: US (occurrence: US)
  Receive Date: 20210804
  Receipt Date: 20211111
  Transmission Date: 20220303
  Serious: No
  Sender: FDA-Public Use
  Company Number: PR-CELGENE-USA-20210707181

PATIENT
  Age: 75 Year
  Sex: Male
  Weight: 83.082 kg

DRUGS (15)
  1. AZACITIDINE [Suspect]
     Active Substance: AZACITIDINE
     Indication: Myelodysplastic syndrome
     Dosage: DAYS 1-5, 8, 9 (75 MG/M2)
     Route: 058
     Dates: start: 20210322
  2. AZACITIDINE [Suspect]
     Active Substance: AZACITIDINE
     Dosage: DAYS 1-5, 8, 9 (75 MG/M2)
     Route: 058
     Dates: start: 20210720
  3. VENETOCLAX [Suspect]
     Active Substance: VENETOCLAX
     Indication: Myelodysplastic syndrome
     Route: 048
  4. JANUMET [Concomitant]
     Active Substance: METFORMIN HYDROCHLORIDE\SITAGLIPTIN PHOSPHATE
     Indication: Type 2 diabetes mellitus
     Dosage: 100/50 MILLIGRAM
     Route: 048
     Dates: start: 2006
  5. Lantus insuline [Concomitant]
     Indication: Type 2 diabetes mellitus
     Dosage: 60 UNITS.
     Route: 058
     Dates: start: 2006
  6. Lantus insuline [Concomitant]
     Dosage: 50 UNIT AT BEDTIME
     Route: 058
     Dates: start: 2006
  7. ASPIRIN [Concomitant]
     Active Substance: ASPIRIN
     Indication: Prophylaxis
     Dosage: 81 MILLIGRAM
     Route: 048
     Dates: start: 2015
  8. ASPIRIN [Concomitant]
     Active Substance: ASPIRIN
     Indication: Coagulopathy
     Dosage: 50 UNITS
     Route: 058
     Dates: start: 2006
  9. SYNTHROID [Concomitant]
     Active Substance: LEVOTHYROXINE SODIUM
     Indication: Thyroid disorder
     Dosage: 81 MICROGRAM
     Route: 048
     Dates: start: 2005
  10. METOPROLOL [Concomitant]
     Active Substance: METOPROLOL
     Indication: Hypertension
     Dosage: 100 MILLIGRAM
     Route: 048
     Dates: start: 2001
  11. METOPROLOL [Concomitant]
     Active Substance: METOPROLOL
     Dosage: 50 MILLIGRAM Q. P.M.
     Route: 048
     Dates: start: 2001
  12. FOLIC ACID [Concomitant]
     Active Substance: FOLIC ACID
     Indication: Anaemia
     Dosage: 1 MILLIGRAM
     Route: 048
     Dates: start: 2020
  13. VITAMINS [Concomitant]
     Active Substance: VITAMINS
     Indication: Nutritional supplementation
     Dosage: 1 TABLET
     Route: 048
     Dates: start: 2020
  14. .ALPHA.-TOCOPHEROL [Concomitant]
     Active Substance: .ALPHA.-TOCOPHEROL
     Indication: Nutritional supplementation
     Dosage: 5000 UNITS
     Route: 048
     Dates: start: 2020
  15. PROCRIT [Concomitant]
     Active Substance: ERYTHROPOIETIN
     Indication: Anaemia
     Dosage: 1000 UNITS
     Route: 058
     Dates: start: 2020

REACTIONS (1)
  - Anaemia [Not Recovered/Not Resolved]

NARRATIVE: CASE EVENT DATE: 20210720
